FAERS Safety Report 24200496 (Version 1)
Quarter: 2024Q3

REPORT INFORMATION
  Report Type: Spontaneous
  Country: GB (occurrence: GB)
  Receive Date: 20240812
  Receipt Date: 20240812
  Transmission Date: 20241017
  Serious: Yes (Other)
  Sender: BAYER
  Company Number: None

PATIENT
  Sex: Female

DRUGS (1)
  1. MIRENA [Suspect]
     Active Substance: LEVONORGESTREL
     Dosage: 20?G/DAY
     Route: 015
     Dates: start: 20221222, end: 20240617

REACTIONS (10)
  - Mental disorder [Unknown]
  - Anxiety [Unknown]
  - Blepharitis [Unknown]
  - Insomnia [Unknown]
  - Ovulation pain [Unknown]
  - Headache [Unknown]
  - Heavy menstrual bleeding [Unknown]
  - Palpitations [Unknown]
  - Weight increased [Unknown]
  - Vomiting [None]
